FAERS Safety Report 6279479-9 (Version None)
Quarter: 2009Q3

REPORT INFORMATION
  Report Type: 
  Country: None (occurrence: None)
  Receive Date: 20090723
  Receipt Date: 20090715
  Transmission Date: 20100115
  Serious: Yes (Life-Threatening)
  Sender: FDA-Public Use
  Company Number: FR-PFIZER INC-2009240376

PATIENT
  Age: 24 Year

DRUGS (5)
  1. AMLOR [Suspect]
     Dosage: 26 DF, SINGLE
     Route: 048
     Dates: start: 20090629, end: 20090629
  2. ATENOLOL [Suspect]
     Dosage: 32 DF, SINGLE
     Route: 048
     Dates: start: 20090629, end: 20090629
  3. CORVASAL [Suspect]
     Dosage: 7 DF, SINGLE
     Route: 048
     Dates: start: 20090629, end: 20090629
  4. COVERSYL [Suspect]
     Dosage: 30 DF, SINGLE
     Route: 048
     Dates: start: 20090629, end: 20090629
  5. LEXOMIL [Suspect]
     Dosage: 30 DF, SINGLE
     Route: 048
     Dates: start: 20090629, end: 20090629

REACTIONS (2)
  - CARDIOGENIC SHOCK [None]
  - INTENTIONAL OVERDOSE [None]
